FAERS Safety Report 9967957 (Version 1)
Quarter: 2014Q1

REPORT INFORMATION
  Report Type: Spontaneous
  Country: US (occurrence: US)
  Receive Date: 20140306
  Receipt Date: 20140306
  Transmission Date: 20141002
  Serious: No
  Sender: FDA-Public Use
  Company Number: US-ABBVIE-13P-163-1141295-00

PATIENT
  Age: 60 Year
  Sex: Female
  Weight: 54.48 kg

DRUGS (2)
  1. HUMIRA [Suspect]
     Indication: ANKYLOSING SPONDYLITIS
     Dates: start: 2009
  2. HUMIRA [Suspect]

REACTIONS (7)
  - Drug effect decreased [Not Recovered/Not Resolved]
  - Incorrect product storage [Recovered/Resolved]
  - Arthralgia [Recovered/Resolved]
  - Ankylosing spondylitis [Not Recovered/Not Resolved]
  - Respiratory tract infection [Recovered/Resolved]
  - Pain in extremity [Recovered/Resolved]
  - Back pain [Recovered/Resolved]
